FAERS Safety Report 9290688 (Version 1)
Quarter: 2013Q2

REPORT INFORMATION
  Report Type: Spontaneous
  Country: TR (occurrence: None)
  Receive Date: 20130513
  Receipt Date: 20130513
  Transmission Date: 20140414
  Serious: Yes (Death, Hospitalization)
  Sender: FDA-Public Use
  Company Number: INT_00251_2013

PATIENT
  Age: 78 Year
  Sex: Female

DRUGS (2)
  1. MEROPENEM (MEROPENEM) [Suspect]
     Indication: ANTIBIOTIC THERAPY
     Route: 042
  2. MEROPENEM (MEROPENEM) [Suspect]
     Indication: OFF LABEL USE
     Route: 042

REACTIONS (9)
  - Pancytopenia [None]
  - Sepsis [None]
  - Acinetobacter test positive [None]
  - Staphylococcus test positive [None]
  - Blood pressure decreased [None]
  - International normalised ratio increased [None]
  - Blood urea increased [None]
  - Blood creatinine increased [None]
  - Blood sodium increased [None]
